FAERS Safety Report 7252750-X (Version None)
Quarter: 2011Q1

REPORT INFORMATION
  Report Type: 
  Country: None (occurrence: None)
  Receive Date: 20110129
  Receipt Date: 20100331
  Transmission Date: 20110831
  Serious: No
  Sender: FDA-Public Use
  Company Number: US-ABBOTT-10P-163-0636581-00

PATIENT
  Age: 55 Year
  Sex: Female
  Weight: 118.04 kg

DRUGS (13)
  1. FENOFIBRATE [Concomitant]
     Indication: PRODUCT USED FOR UNKNOWN INDICATION
  2. HUMIRA [Suspect]
     Indication: PSORIASIS
     Dates: start: 20090101
  3. MULTI-VITAMIN [Concomitant]
     Indication: VITAMIN SUPPLEMENTATION
  4. INDOMETHACIN [Concomitant]
     Indication: ARTHRITIS
  5. ACTONEL [Concomitant]
     Indication: PRODUCT USED FOR UNKNOWN INDICATION
  6. CYCLOBENZAPRINE [Concomitant]
     Indication: PRODUCT USED FOR UNKNOWN INDICATION
  7. CALCIUM WITH VITAMIN D [Concomitant]
     Indication: MINERAL SUPPLEMENTATION
  8. TOPIRAMATE [Concomitant]
     Indication: PRODUCT USED FOR UNKNOWN INDICATION
  9. CITRULLINE [Concomitant]
     Indication: PRODUCT USED FOR UNKNOWN INDICATION
  10. OMEPRAZOLE [Concomitant]
     Indication: PROPHYLAXIS AGAINST GASTROINTESTINAL ULCER
  11. ASCORBIC ACID [Concomitant]
     Indication: VITAMIN SUPPLEMENTATION
  12. SYNTHROID [Concomitant]
     Indication: THYROID DISORDER
  13. HUMIRA [Suspect]
     Dates: start: 20090701

REACTIONS (1)
  - PSORIASIS [None]
